FAERS Safety Report 8531770-9 (Version None)
Quarter: 2012Q3

REPORT INFORMATION
  Report Type: 
  Country: None (occurrence: None)
  Receive Date: 20120723
  Receipt Date: 20120713
  Transmission Date: 20120928
  Serious: Yes (Hospitalization, Other)
  Sender: FDA-Public Use
  Company Number: US-ABBOTT-12P-163-0956484-00

PATIENT
  Sex: Female
  Weight: 58.566 kg

DRUGS (2)
  1. HUMIRA [Suspect]
     Dates: start: 20110101
  2. HUMIRA [Suspect]
     Indication: CROHN'S DISEASE
     Dates: start: 20090101, end: 20090101

REACTIONS (11)
  - DRUG INEFFECTIVE [None]
  - INTESTINAL HAEMORRHAGE [None]
  - GASTROINTESTINAL PAIN [None]
  - INTESTINAL STENOSIS [None]
  - GASTROINTESTINAL OEDEMA [None]
  - INTESTINAL OBSTRUCTION [None]
  - INFLAMMATION [None]
  - ARTHRITIS [None]
  - HAEMORRHAGE [None]
  - COLONIC OBSTRUCTION [None]
  - DIZZINESS [None]
